FAERS Safety Report 6306807-8 (Version None)
Quarter: 2009Q3

REPORT INFORMATION
  Report Type: 
  Country: None (occurrence: None)
  Receive Date: 20090811
  Receipt Date: 20090811
  Transmission Date: 20100115
  Serious: Yes (Other)
  Sender: FDA-Public Use
  Company Number: None

PATIENT
  Sex: Female
  Weight: 58.9676 kg

DRUGS (11)
  1. GLEEVEC [Suspect]
     Dosage: 400MG DAILY PO
     Route: 048
     Dates: start: 20090629
  2. PREDNISONE [Concomitant]
  3. RAPAMUNE [Concomitant]
  4. ACYCLOVIR [Concomitant]
  5. LACTIC ACID [Concomitant]
  6. BACTRIM [Concomitant]
  7. TOPROL-XL [Concomitant]
  8. FENTANYL [Concomitant]
  9. LOVENOX [Concomitant]
  10. GLIPIZIDE [Concomitant]
  11. MULTI-DAY VITAMINS [Concomitant]

REACTIONS (1)
  - OEDEMA PERIPHERAL [None]
